FAERS Safety Report 6989785-8 (Version None)
Quarter: 2010Q3

REPORT INFORMATION
  Report Type: 
  Country: None (occurrence: None)
  Receive Date: 20100916
  Receipt Date: 20100303
  Transmission Date: 20110219
  Serious: Yes (Other)
  Sender: FDA-Public Use
  Company Number: CH-PFIZER INC-2010014701

PATIENT
  Sex: Female
  Weight: 66.5 kg

DRUGS (5)
  1. LYRICA [Suspect]
     Indication: ANXIETY
     Dosage: 75 MG, 2X/DAY
     Route: 048
     Dates: start: 20091103, end: 20100127
  2. LOSARTAN [Concomitant]
     Dosage: 50 MG, 1X/DAY
     Route: 048
     Dates: start: 20090508
  3. TEMESTA [Concomitant]
     Dosage: 1 MG, 2X/DAY
     Route: 048
     Dates: start: 20031125
  4. CRESTOR [Concomitant]
     Dosage: 10 MG, 1X/DAY
     Route: 048
     Dates: start: 20090417
  5. EUTHYROX [Concomitant]
     Dosage: 50 UG, 1X/DAY
     Route: 048
     Dates: start: 20081216

REACTIONS (8)
  - CHILLS [None]
  - DECREASED APPETITE [None]
  - DIARRHOEA [None]
  - INSOMNIA [None]
  - NERVOUSNESS [None]
  - WEIGHT DECREASED [None]
  - WEIGHT INCREASED [None]
  - WITHDRAWAL SYNDROME [None]
